FAERS Safety Report 8487881-X (Version None)
Quarter: 2012Q2

REPORT INFORMATION
  Report Type: 
  Country: None (occurrence: None)
  Receive Date: 20120402
  Receipt Date: 20100709
  Transmission Date: 20120825
  Serious: Yes (Other)
  Sender: FDA-Public Use
  Company Number: PHHY2010US45443

PATIENT
  Age: 71 Year
  Sex: Female

DRUGS (7)
  1. VYTORIN [Concomitant]
  2. EXFORGE [Suspect]
     Indication: HYPERTENSION
     Dosage: 1 DF, UNK, ORAL
     Route: 048
     Dates: start: 20090101, end: 20100201
  3. COREG [Concomitant]
  4. FUROSEMIDE (FUROSEMIDE) [Concomitant]
  5. DIOVAN [Concomitant]
  6. ZEGERID [Concomitant]
  7. DIOVAN HCT [Concomitant]

REACTIONS (3)
  - HYPERTENSION [None]
  - FEELING HOT [None]
  - JOINT SWELLING [None]
